FAERS Safety Report 15428157 (Version 1)
Quarter: 2018Q3

REPORT INFORMATION
  Report Type: Report from Study
  Country: US (occurrence: US)
  Receive Date: 20180926
  Receipt Date: 20180926
  Transmission Date: 20181010
  Serious: Yes (Other)
  Sender: FDA-Public Use
  Company Number: US-ROCHE-2189038

PATIENT
  Sex: Female

DRUGS (2)
  1. XOLAIR [Suspect]
     Active Substance: OMALIZUMAB
     Indication: ASTHMA
     Dosage: SPLIT INTO TWO INJECTIONS
     Route: 065
     Dates: start: 2012
  2. XOLAIR [Suspect]
     Active Substance: OMALIZUMAB
     Dosage: ONE INJECTION ;
     Route: 065
     Dates: start: 2008, end: 2012

REACTIONS (3)
  - Pain in extremity [Unknown]
  - Pain [Recovered/Resolved]
  - Anaphylactic reaction [Unknown]
